FAERS Safety Report 7287804-5 (Version None)
Quarter: 2011Q1

REPORT INFORMATION
  Report Type: 
  Country: None (occurrence: None)
  Receive Date: 20110211
  Receipt Date: 20110203
  Transmission Date: 20110831
  Serious: Yes (Other)
  Sender: FDA-Public Use
  Company Number: US-B.I. PHARMACEUTICALS,INC./RIDGEFIELD-2011-BP-02476PF

PATIENT
  Sex: Female

DRUGS (4)
  1. UNSPECIFIED MEDICATION FOR HIGH BLOOD PRESSURE [Concomitant]
     Indication: HYPERTENSION
  2. TOVIAZ [Suspect]
     Indication: HYPERTONIC BLADDER
     Route: 048
     Dates: start: 20101201
  3. UNSPECIFIED MEDICATIONS [Concomitant]
  4. SPIRIVA [Suspect]
     Route: 055

REACTIONS (9)
  - NEOPLASM [None]
  - NERVOUSNESS [None]
  - OCULAR DISCOMFORT [None]
  - EYE PAIN [None]
  - DYSSTASIA [None]
  - INSOMNIA [None]
  - LIP SWELLING [None]
  - THIRST [None]
  - CONSTIPATION [None]
